FAERS Safety Report 14476399 (Version 1)
Quarter: 2018Q1

REPORT INFORMATION
  Report Type: Spontaneous
  Country: US (occurrence: US)
  Receive Date: 20180201
  Receipt Date: 20180201
  Transmission Date: 20180509
  Serious: No
  Sender: FDA-Public Use
  Company Number: US-SA-2017SA221525

PATIENT
  Age: 55 Year
  Sex: Female

DRUGS (2)
  1. ALIROCUMAB PREFILLED PEN [Suspect]
     Active Substance: ALIROCUMAB
     Indication: LOW DENSITY LIPOPROTEIN
     Dates: start: 20171010, end: 20171024
  2. PRALUENT [Suspect]
     Active Substance: ALIROCUMAB
     Indication: LOW DENSITY LIPOPROTEIN
     Route: 058
     Dates: start: 20171010, end: 20171024

REACTIONS (8)
  - Angiopathy [Unknown]
  - Scar [Unknown]
  - Vasculitis [Unknown]
  - Pruritus generalised [Not Recovered/Not Resolved]
  - Dyspnoea [Unknown]
  - Blood count abnormal [Unknown]
  - Rash erythematous [Unknown]
  - Coagulopathy [Unknown]

NARRATIVE: CASE EVENT DATE: 201710
